FAERS Safety Report 5050992-5 (Version None)
Quarter: 2006Q3

REPORT INFORMATION
  Report Type: 
  Country: None (occurrence: None)
  Receive Date: 20060714
  Receipt Date: 20060704
  Transmission Date: 20061208
  Serious: Yes (Hospitalization)
  Sender: FDA-Public Use
  Company Number: PHHO2006CL10874

PATIENT
  Age: 27 Year
  Sex: Female

DRUGS (2)
  1. ZELMAC / HTF 919A [Suspect]
     Dosage: 6 MG, BID
     Route: 048
     Dates: start: 20060201
  2. CLINDAMYCIN [Concomitant]

REACTIONS (4)
  - CYST REMOVAL [None]
  - OOPHORECTOMY [None]
  - OVARIAN ABSCESS [None]
  - SALPINGECTOMY [None]
